FAERS Safety Report 12073200 (Version 2)
Quarter: 2016Q1

REPORT INFORMATION
  Report Type: Spontaneous
  Country: US (occurrence: US)
  Receive Date: 20160212
  Receipt Date: 20160324
  Transmission Date: 20160526
  Serious: Yes (Other)
  Sender: FDA-Public Use
  Company Number: US-JNJFOC-20160205875

PATIENT
  Sex: Female
  Weight: 88.45 kg

DRUGS (10)
  1. PREDNISONE. [Interacting]
     Active Substance: PREDNISONE
     Indication: UVEITIS
     Route: 048
     Dates: start: 201602
  2. DULOXETINE. [Concomitant]
     Active Substance: DULOXETINE
     Indication: EUPHORIC MOOD
     Route: 048
     Dates: start: 2008
  3. PREDNISONE. [Interacting]
     Active Substance: PREDNISONE
     Indication: UVEITIS
     Route: 048
     Dates: start: 2014, end: 2014
  4. LEVOTHYROXINE. [Concomitant]
     Active Substance: LEVOTHYROXINE
     Indication: THYROID DISORDER
     Route: 048
     Dates: start: 2001
  5. METFORMIN HCL [Concomitant]
     Active Substance: METFORMIN HYDROCHLORIDE
     Indication: DIABETES MELLITUS
     Route: 048
     Dates: start: 2013
  6. DOCUSATE SODIUM. [Concomitant]
     Active Substance: DOCUSATE SODIUM
     Route: 048
     Dates: start: 2008
  7. TYLENOL [Concomitant]
     Active Substance: ACETAMINOPHEN
     Route: 065
  8. INVOKANA [Suspect]
     Active Substance: CANAGLIFLOZIN
     Indication: TYPE 2 DIABETES MELLITUS
     Route: 048
     Dates: start: 2014
  9. DULOXETINE. [Concomitant]
     Active Substance: DULOXETINE
     Indication: DEPRESSION
     Route: 048
     Dates: start: 2008
  10. JANUVIA [Concomitant]
     Active Substance: SITAGLIPTIN PHOSPHATE
     Indication: DIABETES MELLITUS
     Route: 048
     Dates: start: 2013

REACTIONS (6)
  - Adverse event [Unknown]
  - Blood glucose increased [Unknown]
  - Drug interaction [Unknown]
  - Headache [Unknown]
  - Uveitis [Not Recovered/Not Resolved]
  - Abnormal loss of weight [Not Recovered/Not Resolved]

NARRATIVE: CASE EVENT DATE: 2014
